FAERS Safety Report 6188368-X (Version None)
Quarter: 2009Q2

REPORT INFORMATION
  Report Type: 
  Country: None (occurrence: None)
  Receive Date: 20090513
  Receipt Date: 20090507
  Transmission Date: 20091009
  Serious: Yes (Other)
  Sender: FDA-Public Use
  Company Number: CA-JNJFOC-20090501616

PATIENT
  Age: 75 Year
  Sex: Female

DRUGS (3)
  1. HALOPERIDOL [Suspect]
     Indication: SCHIZOPHRENIA
     Route: 065
  2. ANTIPSYCHOTICS [Concomitant]
     Route: 065
  3. ANTI-CONVULSANT COMBINATION DRUG THERAPY [Concomitant]
     Route: 065

REACTIONS (3)
  - AGITATION [None]
  - CATATONIA [None]
  - TARDIVE DYSKINESIA [None]
